FAERS Safety Report 9418965 (Version 1)
Quarter: 2013Q3

REPORT INFORMATION
  Report Type: Spontaneous
  Country: US (occurrence: US)
  Receive Date: 20130725
  Receipt Date: 20130725
  Transmission Date: 20140515
  Serious: Yes (Other)
  Sender: FDA-Public Use
  Company Number: US-RANBAXY-2013US-71390

PATIENT
  Sex: Female

DRUGS (2)
  1. MINOCYCLINE [Suspect]
     Indication: BITE
     Dosage: 50 MG, QD
     Route: 065
     Dates: end: 20130710
  2. PERMETHRIN [Concomitant]
     Indication: PRODUCT USED FOR UNKNOWN INDICATION
     Dosage: UNK
     Route: 065

REACTIONS (2)
  - Vision blurred [Recovering/Resolving]
  - Back pain [Recovering/Resolving]
